FAERS Safety Report 16269605 (Version 2)
Quarter: 2019Q2

REPORT INFORMATION
  Report Type: Spontaneous
  Country: US (occurrence: US)
  Receive Date: 20190503
  Receipt Date: 20190530
  Transmission Date: 20190711
  Serious: Yes (Death, Hospitalization, Other)
  Sender: FDA-Public Use
  Company Number: US-PFIZER INC-2019191058

PATIENT
  Age: 61 Year
  Sex: Female
  Weight: 49.1 kg

DRUGS (3)
  1. LORBRENA [Suspect]
     Active Substance: LORLATINIB
     Indication: LUNG CANCER METASTATIC
     Dosage: 100 MG, 1X/DAY
     Route: 048
     Dates: start: 20190207, end: 20190426
  2. XGEVA [Concomitant]
     Active Substance: DENOSUMAB
     Indication: METASTASES TO BONE
     Dosage: 120 MG, MONTHLY
     Route: 058
     Dates: start: 20190207, end: 20190227
  3. CALCIUM + VITAMIN D [CALCIUM CITRATE;COLECALCIFEROL] [Concomitant]
     Indication: METASTASES TO BONE
     Dosage: 500 MG, 2X/DAY
     Route: 048
     Dates: start: 201802, end: 201904

REACTIONS (7)
  - Pneumonitis [Fatal]
  - Pneumonia [Fatal]
  - Neoplasm progression [Fatal]
  - Cardiac death [Fatal]
  - Pulmonary alveolar haemorrhage [Unknown]
  - Pain [Unknown]
  - Pulmonary oedema [Unknown]

NARRATIVE: CASE EVENT DATE: 20190420
